FAERS Safety Report 7455615-3 (Version None)
Quarter: 2011Q2

REPORT INFORMATION
  Report Type: 
  Country: None (occurrence: None)
  Receive Date: 20110503
  Receipt Date: 20110429
  Transmission Date: 20111010
  Serious: Yes (Death, Other)
  Sender: FDA-Public Use
  Company Number: DK-ASTRAZENECA-2003AP02746

PATIENT
  Age: 5805 Day
  Sex: Male

DRUGS (4)
  1. IRESSA [Suspect]
     Indication: ADRENAL CARCINOMA
     Route: 048
     Dates: start: 20030420, end: 20030621
  2. SAROTEN [Concomitant]
  3. PREDNISOLONE [Concomitant]
  4. MENADION [Concomitant]

REACTIONS (2)
  - TOXIC EPIDERMAL NECROLYSIS [None]
  - OFF LABEL USE [None]
